FAERS Safety Report 14982464 (Version 4)
Quarter: 2018Q4

REPORT INFORMATION
  Report Type: Spontaneous
  Country: US (occurrence: US)
  Receive Date: 20180607
  Receipt Date: 20181206
  Transmission Date: 20190204
  Serious: No
  Sender: FDA-Public Use
  Company Number: US-PFIZER INC-2018230767

PATIENT
  Age: 54 Year
  Sex: Female

DRUGS (8)
  1. DOCETAXEL. [Suspect]
     Active Substance: DOCETAXEL
     Indication: HER-2 POSITIVE BREAST CANCER
     Dosage: 146.2 MG, CYCLIC (EVERY THREE WEEKS, 06 CYCLES)
     Dates: start: 20111028, end: 20120210
  2. CARBOPLATIN. [Concomitant]
     Active Substance: CARBOPLATIN
     Indication: HER-2 POSITIVE BREAST CANCER
  3. AMOXICILLIN. [Concomitant]
     Active Substance: AMOXICILLIN
     Dosage: UNK
     Dates: start: 2011, end: 201110
  4. HYDROCODONE [Concomitant]
     Active Substance: HYDROCODONE
     Dosage: UNK
     Dates: start: 2011, end: 201110
  5. ALKALINE [Concomitant]
     Dosage: UNK
     Dates: start: 2011, end: 201110
  6. DOCETAXEL. [Suspect]
     Active Substance: DOCETAXEL
     Indication: HER-2 POSITIVE BREAST CANCER
     Dosage: 146.2 MG, CYCLIC (EVERY THREE WEEKS, 06 CYCLES)
     Dates: start: 20111028, end: 20120210
  7. TAXOTERE [Suspect]
     Active Substance: DOCETAXEL
     Indication: HER-2 POSITIVE BREAST CANCER
     Dosage: 146.2 MG, CYCLIC (EVERY THREE WEEKS, 06 CYCLES)
     Dates: start: 20111028, end: 20120210
  8. CREATINE [Concomitant]
     Active Substance: CREATINE
     Dosage: UNK
     Dates: start: 2011, end: 201110

REACTIONS (5)
  - Hair disorder [Not Recovered/Not Resolved]
  - Hair texture abnormal [Not Recovered/Not Resolved]
  - Alopecia [Not Recovered/Not Resolved]
  - Madarosis [Not Recovered/Not Resolved]
  - Hair colour changes [Not Recovered/Not Resolved]

NARRATIVE: CASE EVENT DATE: 201111
